FAERS Safety Report 23321304 (Version 4)
Quarter: 2024Q2

REPORT INFORMATION
  Report Type: Report from Study
  Country: US (occurrence: US)
  Receive Date: 20231220
  Receipt Date: 20240624
  Transmission Date: 20240716
  Serious: Yes (Hospitalization, Other)
  Sender: FDA-Public Use
  Company Number: US-ABBVIE-5549182

PATIENT
  Age: 60 Year
  Sex: Female
  Weight: 67 kg

DRUGS (10)
  1. RINVOQ [Suspect]
     Active Substance: UPADACITINIB
     Indication: Colitis ulcerative
     Dosage: FORM STRENGTH: 45 MILLIGRAM
     Route: 048
     Dates: start: 202310, end: 20231203
  2. RINVOQ [Suspect]
     Active Substance: UPADACITINIB
     Indication: Colitis ulcerative
     Dosage: 1 TABLET?FORM STRENGTH: 30 MILLIGRAM
     Route: 048
     Dates: start: 20231204
  3. RINVOQ [Suspect]
     Active Substance: UPADACITINIB
     Indication: Colitis ulcerative
     Dosage: LAST ADMIN DATE: 2023
     Route: 048
     Dates: start: 20230815
  4. RINVOQ [Suspect]
     Active Substance: UPADACITINIB
     Indication: Colitis ulcerative
     Dosage: FORM STRENGTH: 45 MILLIGRAM
     Route: 048
     Dates: start: 20240615
  5. DOXYCYCLINE [Concomitant]
     Active Substance: DOXYCYCLINE\DOXYCYCLINE HYCLATE
     Indication: Crohn^s disease
  6. MAGNESIUM [Concomitant]
     Active Substance: MAGNESIUM
     Indication: Product used for unknown indication
     Dosage: FORM STRENGTH: 4000 MILLIGRAM
  7. NYSTATIN [Concomitant]
     Active Substance: NYSTATIN
     Indication: Oral herpes
     Dosage: FREQUENCY TEXT: SWISH AND SWALLOW TWICE A DAY
     Dates: start: 20231220
  8. VALTREX [Concomitant]
     Active Substance: VALACYCLOVIR HYDROCHLORIDE
     Indication: Cellulitis
     Dosage: FREQUENCY TEXT: 2 PERIODS: 2 - 3 TIMES A DAY FOR 7 DAYS
     Dates: start: 202311, end: 202311
  9. VALTREX [Concomitant]
     Active Substance: VALACYCLOVIR HYDROCHLORIDE
     Indication: Cellulitis
     Dosage: FREQUENCY TEXT: 2 TO 3 TIMES A DAY FOR 7 DAYS
     Dates: start: 202310, end: 202310
  10. FLAGYL [Concomitant]
     Active Substance: METRONIDAZOLE\METRONIDAZOLE HYDROCHLORIDE
     Indication: Crohn^s disease

REACTIONS (26)
  - Small intestinal obstruction [Not Recovered/Not Resolved]
  - Chills [Recovering/Resolving]
  - Faeces discoloured [Recovering/Resolving]
  - Oral herpes [Recovering/Resolving]
  - Nausea [Not Recovered/Not Resolved]
  - Vision blurred [Not Recovered/Not Resolved]
  - Product residue present [Not Recovered/Not Resolved]
  - Gingival swelling [Recovering/Resolving]
  - Vitreoretinal traction syndrome [Not Recovered/Not Resolved]
  - Cellulitis [Recovered/Resolved]
  - Abdominal pain [Recovering/Resolving]
  - Swollen tongue [Recovered/Resolved]
  - Dizziness [Not Recovered/Not Resolved]
  - Herpes zoster [Recovered/Resolved]
  - Weight decreased [Not Recovered/Not Resolved]
  - Steatorrhoea [Recovering/Resolving]
  - Diarrhoea [Recovering/Resolving]
  - Herpes zoster [Recovered/Resolved]
  - Ear infection [Recovering/Resolving]
  - Product solubility abnormal [Not Recovered/Not Resolved]
  - Blood magnesium decreased [Not Recovered/Not Resolved]
  - Sinusitis [Unknown]
  - Flatulence [Not Recovered/Not Resolved]
  - Vomiting [Not Recovered/Not Resolved]
  - Crohn^s disease [Unknown]
  - Abdominal distension [Unknown]

NARRATIVE: CASE EVENT DATE: 20230901
